FAERS Safety Report 8139971-9 (Version None)
Quarter: 2012Q1

REPORT INFORMATION
  Report Type: 
  Country: None (occurrence: None)
  Receive Date: 20120215
  Receipt Date: 20120202
  Transmission Date: 20120608
  Serious: Yes (Hospitalization, Other)
  Sender: FDA-Public Use
  Company Number: US-RB-037063-12

PATIENT
  Age: 32 Year
  Sex: Female

DRUGS (1)
  1. SUBOXONE [Suspect]
     Indication: PRODUCT USED FOR UNKNOWN INDICATION
     Dosage: 1 FILM EVERY 12 HOURS (UNKNOWN DOSE STRENGTH)
     Route: 065

REACTIONS (3)
  - RECTAL FISSURE [None]
  - PROCTALGIA [None]
  - DRUG WITHDRAWAL SYNDROME [None]
